FAERS Safety Report 7820039-3 (Version None)
Quarter: 2011Q4

REPORT INFORMATION
  Report Type: 
  Country: None (occurrence: None)
  Receive Date: 20111018
  Receipt Date: 20111005
  Transmission Date: 20120403
  Serious: Yes (Hospitalization, Disabling, Other)
  Sender: FDA-Public Use
  Company Number: PHHY2011VE81992

PATIENT
  Sex: Female

DRUGS (7)
  1. OMEPRAZOLE [Concomitant]
     Indication: ABDOMINAL DISCOMFORT
     Dosage: 1 DF, QD
  2. ATAMEL [Concomitant]
  3. EXELON [Suspect]
     Dosage: UNK UKN, UNK
     Dates: start: 20100103
  4. HYZAAR [Concomitant]
  5. CALCIBON (CALCIUM CITRATE) [Concomitant]
     Dosage: 200 MG, UNK
  6. PLAVIX [Concomitant]
  7. HYDROCHLOROTHIAZIDE [Concomitant]

REACTIONS (6)
  - CELLULITIS [None]
  - NERVOUS SYSTEM DISORDER [None]
  - ABASIA [None]
  - INFLAMMATION [None]
  - NERVOUSNESS [None]
  - ERYTHEMA [None]
